FAERS Safety Report 8811387 (Version 1)
Quarter: 2012Q4

REPORT INFORMATION
  Report Type: 
  Country: US (occurrence: US)
  Receive Date: 20120927
  Receipt Date: 20120927
  Transmission Date: 20130627
  Serious: Yes (Other)
  Sender: FDA-Public Use
  Company Number: US-PFIZER INC-2012239169

PATIENT
  Sex: Male

DRUGS (2)
  1. CHANTIX [Suspect]
     Dosage: 1 mg, accidentally
     Dates: start: 20120925, end: 20120925
  2. VALIUM [Suspect]
     Indication: SEDATION
     Dosage: UNK

REACTIONS (5)
  - Accidental exposure to product [Unknown]
  - Product quality issue [Unknown]
  - Panic reaction [Unknown]
  - Mania [Unknown]
  - Tachyphrenia [Unknown]
